FAERS Safety Report 15263369 (Version 1)
Quarter: 2018Q3

REPORT INFORMATION
  Report Type: Spontaneous
  Country: US (occurrence: US)
  Receive Date: 20180810
  Receipt Date: 20180810
  Transmission Date: 20181010
  Serious: No
  Sender: FDA-Public Use
  Company Number: US-ASTRAZENECA-2018SF01216

PATIENT

DRUGS (2)
  1. FASENRA [Suspect]
     Active Substance: BENRALIZUMAB
     Dosage: UNKNOWN DOSE
     Route: 058
     Dates: start: 20180505
  2. FASENRA [Suspect]
     Active Substance: BENRALIZUMAB
     Dosage: UNKNOWN DOSE
     Route: 058
     Dates: start: 20180605

REACTIONS (5)
  - Asthenia [Unknown]
  - Cough [Unknown]
  - Dysphonia [Unknown]
  - Headache [Unknown]
  - Dyspnoea [Unknown]
